FAERS Safety Report 13554532 (Version 1)
Quarter: 2017Q2

REPORT INFORMATION
  Report Type: Spontaneous
  Country: US (occurrence: US)
  Receive Date: 20170516
  Receipt Date: 20170516
  Transmission Date: 20170830
  Serious: Yes (Other)
  Sender: FDA-Public Use
  Company Number: None

PATIENT
  Age: 38 Year
  Sex: Female
  Weight: 113.8 kg

DRUGS (4)
  1. TDAP [Concomitant]
     Active Substance: TETANUS TOXOID, REDUCED DIPHTHERIA TOXOID AND ACELLULAR PERTUSSIS VACCINE ADSORBED, TDAP
  2. IBUPROFEN. [Concomitant]
     Active Substance: IBUPROFEN
  3. MMR [Concomitant]
     Active Substance: MEASLES-MUMPS-RUBELLA VIRUS VACCINE
  4. SULFAMETHOXAZOLE AND TRIMETHOPRI [Suspect]
     Active Substance: SULFAMETHOXAZOLE\TRIMETHOPRIM
     Indication: PRODUCT USED FOR UNKNOWN INDICATION
     Dosage: ?          QUANTITY:1 TABLET(S);OTHER FREQUENCY:ONCE;?
     Route: 048
     Dates: start: 20170513, end: 20170513

REACTIONS (4)
  - Pruritus [None]
  - Lip exfoliation [None]
  - Rash [None]
  - Paraesthesia oral [None]

NARRATIVE: CASE EVENT DATE: 20170513
